FAERS Safety Report 15067125 (Version 1)
Quarter: 2018Q2

REPORT INFORMATION
  Report Type: Spontaneous
  Country: GB (occurrence: GB)
  Receive Date: 20180626
  Receipt Date: 20180626
  Transmission Date: 20180711
  Serious: Yes (Other)
  Sender: FDA-Public Use
  Company Number: GB-GLAXOSMITHKLINE-GB2018108651

PATIENT
  Age: 63 Year
  Sex: Female
  Weight: 63.5 kg

DRUGS (1)
  1. BECONASE AQ [Suspect]
     Active Substance: BECLOMETHASONE DIPROPIONATE MONOHYDRATE
     Indication: EUSTACHIAN TUBE DYSFUNCTION
     Dosage: IN EACH NOSTRIL.
     Route: 045
     Dates: start: 20180530, end: 20180531

REACTIONS (5)
  - Condition aggravated [Unknown]
  - Oropharyngeal pain [Recovering/Resolving]
  - Tongue discolouration [Recovering/Resolving]
  - Glossodynia [Recovering/Resolving]
  - Swollen tongue [Recovering/Resolving]

NARRATIVE: CASE EVENT DATE: 20180530
